FAERS Safety Report 11216864 (Version 3)
Quarter: 2015Q3

REPORT INFORMATION
  Report Type: Spontaneous
  Country: US (occurrence: US)
  Receive Date: 20150624
  Receipt Date: 20150827
  Transmission Date: 20151125
  Serious: Yes (Hospitalization, Other)
  Sender: FDA-Public Use
  Company Number: US-PFIZER INC-2015207273

PATIENT
  Age: 52 Year
  Sex: Male
  Weight: 61.68 kg

DRUGS (1)
  1. LYRICA [Suspect]
     Active Substance: PREGABALIN
     Indication: TESTICULAR CYST
     Dosage: 150 MG, 2X/DAY
     Dates: start: 200806

REACTIONS (4)
  - Emphysema [Not Recovered/Not Resolved]
  - Lung disorder [Not Recovered/Not Resolved]
  - Pneumothorax [Unknown]
  - Painful respiration [Unknown]

NARRATIVE: CASE EVENT DATE: 20090601
